FAERS Safety Report 21269768 (Version 2)
Quarter: 2022Q3

REPORT INFORMATION
  Report Type: Spontaneous
  Country: FI (occurrence: FI)
  Receive Date: 20220830
  Receipt Date: 20220909
  Transmission Date: 20221026
  Serious: Yes (Life-Threatening)
  Sender: FDA-Public Use
  Company Number: FI-BAYER-2022P012357

PATIENT
  Age: 37 Year
  Sex: Female

DRUGS (2)
  1. DROSPIRENONE [Suspect]
     Active Substance: DROSPIRENONE
     Dosage: 1 DF, QD
     Route: 048
     Dates: start: 20211228, end: 20220726
  2. MEDITHYROX [Concomitant]
     Dosage: 100 MCG

REACTIONS (3)
  - Depression suicidal [Recovered/Resolved]
  - Aggression [Recovered/Resolved]
  - Mood altered [Recovered/Resolved]

NARRATIVE: CASE EVENT DATE: 20220201
